FAERS Safety Report 8155032-7 (Version None)
Quarter: 2012Q1

REPORT INFORMATION
  Report Type: 
  Country: None (occurrence: None)
  Receive Date: 20120221
  Receipt Date: 20120215
  Transmission Date: 20120608
  Serious: Yes (Hospitalization)
  Sender: FDA-Public Use
  Company Number: BE-B.I. PHARMACEUTICALS,INC./RIDGEFIELD-2012-BL-00106BL

PATIENT
  Age: 75 Year
  Sex: Female

DRUGS (3)
  1. ANTI-INFLAMMATORY DRUGS [Suspect]
     Indication: ANTIINFLAMMATORY THERAPY
  2. PRADAXA [Suspect]
     Indication: ATRIAL FIBRILLATION
     Dosage: 220 MG
  3. ASPIRIN [Concomitant]

REACTIONS (4)
  - NEPHROPATHY TOXIC [None]
  - RENAL DISORDER [None]
  - HAEMORRHAGE [None]
  - OVERDOSE [None]
